FAERS Safety Report 10919191 (Version 1)
Quarter: 2015Q1

REPORT INFORMATION
  Report Type: Spontaneous
  Country: AU (occurrence: AU)
  Receive Date: 20150316
  Receipt Date: 20150316
  Transmission Date: 20150721
  Serious: Yes (Other)
  Sender: FDA-Public Use
  Company Number: AU-MYLANLABS-2015M1008268

PATIENT

DRUGS (2)
  1. ERLOTINIB [Suspect]
     Active Substance: ERLOTINIB
     Route: 065
  2. TEMSIROLIMUS [Suspect]
     Active Substance: TEMSIROLIMUS
     Route: 065

REACTIONS (3)
  - Nausea [Unknown]
  - Dehydration [Unknown]
  - Myocardial infarction [Unknown]
